FAERS Safety Report 6289156-6 (Version None)
Quarter: 2009Q3

REPORT INFORMATION
  Report Type: 
  Country: None (occurrence: None)
  Receive Date: 20090728
  Receipt Date: 20090721
  Transmission Date: 20100115
  Serious: Yes (Death)
  Sender: FDA-Public Use
  Company Number: 2009JP004430

PATIENT
  Age: 62 Year
  Sex: Male
  Weight: 54 kg

DRUGS (9)
  1. FUNGUARD(MICAFUNGIN) INJECTION [Suspect]
     Indication: ASPERGILLOSIS
     Dosage: 150 MG, IV DRIP
     Route: 041
     Dates: start: 20090605, end: 20090626
  2. PENTCILLIN (PIPERACILLIN SODIUM) INJECTION [Concomitant]
  3. GENTACIN (GENTAMICIN SULFATE) INJECTION [Concomitant]
  4. MEROPEN (MEROPENEM) INJECTION [Concomitant]
  5. TARGOCID [Concomitant]
  6. CIPROFLOXACIN (CIPROFLOXACIN) FORMULATION UNKNOWN [Concomitant]
  7. AZACTAM (AZTREONAM) INJECTION [Concomitant]
  8. NEUPOGEN [Concomitant]
  9. CEFTAZIDIME (CEFTAZIDIME) FORMULATION UNKNOWN [Concomitant]

REACTIONS (1)
  - DEATH [None]
